FAERS Safety Report 24281060 (Version 1)
Quarter: 2024Q3

REPORT INFORMATION
  Report Type: Spontaneous
  Country: US (occurrence: US)
  Receive Date: 20240904
  Receipt Date: 20240904
  Transmission Date: 20241017
  Serious: Yes (Other)
  Sender: PFIZER
  Company Number: US-PFIZER INC-PV202400114843

PATIENT
  Age: 38 Year
  Sex: Female

DRUGS (7)
  1. DILTIAZEM HYDROCHLORIDE [Suspect]
     Active Substance: DILTIAZEM HYDROCHLORIDE
     Indication: Angina pectoris
     Dosage: 90 MG, 4X/DAY
  2. DILTIAZEM HYDROCHLORIDE [Suspect]
     Active Substance: DILTIAZEM HYDROCHLORIDE
     Indication: Arrhythmia
     Dosage: 30 MG, 4X/DAY
  3. QUINIDINE [Concomitant]
     Active Substance: QUINIDINE
     Indication: Angina pectoris
     Dosage: CONSTANT DOSE
  4. QUINIDINE [Concomitant]
     Active Substance: QUINIDINE
     Indication: Arrhythmia
  5. NITROGLYCERIN [Concomitant]
     Active Substance: NITROGLYCERIN
     Indication: Angina pectoris
     Dosage: UNK, AS NEEDED
  6. NITROGLYCERIN [Concomitant]
     Active Substance: NITROGLYCERIN
     Indication: Arrhythmia
  7. NPH INSULIN [Concomitant]
     Active Substance: INSULIN BEEF
     Indication: Type 1 diabetes mellitus
     Dosage: TWO TO FOUR TIMES DAILY
     Route: 058

REACTIONS (3)
  - Insulin resistance [Recovering/Resolving]
  - Hyperglycaemia [Recovering/Resolving]
  - Off label use [Unknown]
